FAERS Safety Report 7595480-7 (Version None)
Quarter: 2011Q3

REPORT INFORMATION
  Report Type: 
  Country: None (occurrence: None)
  Receive Date: 20110707
  Receipt Date: 20110629
  Transmission Date: 20111222
  Serious: Yes (Hospitalization, Other)
  Sender: FDA-Public Use
  Company Number: FR-ROCHE-786588

PATIENT
  Age: 51 Year
  Sex: Male

DRUGS (3)
  1. TEGRETOL [Interacting]
     Route: 048
     Dates: start: 20110526, end: 20110530
  2. CLONAZEPAM [Suspect]
     Dosage: FREQ:  DAILY. DOSE AMOUNT:  2.5 MG/ML
     Route: 048
     Dates: start: 20110526, end: 20110530
  3. IXEL [Interacting]
     Route: 048
     Dates: start: 20110516, end: 20110528

REACTIONS (7)
  - ASTHENIA [None]
  - RASH PUSTULAR [None]
  - PURPURA [None]
  - CONJUNCTIVITIS [None]
  - EYELID OEDEMA [None]
  - RASH GENERALISED [None]
  - DRUG INTERACTION [None]
